FAERS Safety Report 8030215-5 (Version None)
Quarter: 2012Q1

REPORT INFORMATION
  Report Type: 
  Country: None (occurrence: None)
  Receive Date: 20120105
  Receipt Date: 20111220
  Transmission Date: 20120608
  Serious: Yes (Disabling)
  Sender: FDA-Public Use
  Company Number: FK201103092

PATIENT
  Age: 63 Year
  Sex: Female
  Weight: 66.4 kg

DRUGS (6)
  1. CO-DANTHRAMER (DORBANEX) (DORBANEX) [Concomitant]
  2. DOCUSATE SODIUM (DOCUSATE SODIUM) (DOCUSATE SODIUM) [Concomitant]
  3. DOMPERIDONE (DOMPERIDONE) (DOMPERIDONE) [Concomitant]
  4. LEVOTHYROXINE SODIUM [Concomitant]
  5. SUMATRIPTAN (SUMITRIPAN) (SUMITRIPTAN) [Concomitant]
  6. TOPOTECAN [Suspect]
     Dosage: 2.5 MG, INTRAVENOUS (NOT OTHERWISE SPECIFIED)
     Dates: start: 20111019, end: 20111118

REACTIONS (5)
  - PHOTOPSIA [None]
  - VISUAL IMPAIRMENT [None]
  - HALLUCINATION, VISUAL [None]
  - SCOTOMA [None]
  - HEADACHE [None]
